FAERS Safety Report 6919178-0 (Version None)
Quarter: 2010Q3

REPORT INFORMATION
  Report Type: 
  Country: None (occurrence: None)
  Receive Date: 20100811
  Receipt Date: 20100802
  Transmission Date: 20110219
  Serious: Yes (Hospitalization, Disabling, Other)
  Sender: FDA-Public Use
  Company Number: FR-PFIZER INC-2006106014

PATIENT
  Age: 62 Year
  Sex: Female
  Weight: 82 kg

DRUGS (6)
  1. TAHOR [Suspect]
     Indication: BLOOD CHOLESTEROL
     Dosage: 10 MG, 1X/DAY (IN THE EVENING)
     Route: 048
     Dates: start: 20041101, end: 20060710
  2. TAHOR [Suspect]
     Indication: THROMBOSIS PROPHYLAXIS
  3. ATENOLOL [Concomitant]
     Indication: HYPERTENSION
     Dosage: 100 UNK, 1X/DAY (IN THE MORNING)
     Route: 048
     Dates: start: 20050415
  4. EFFEXOR [Concomitant]
     Indication: DEPRESSION
     Dosage: 37.5 MG, UNK
     Route: 048
     Dates: start: 20051108
  5. ATEPADENE [Concomitant]
     Indication: MUSCLE SPASMS
     Dosage: 30 MG, 1X/DAY
     Route: 048
     Dates: start: 20060623
  6. TANGANIL [Concomitant]
     Indication: VERTIGO
     Dosage: 2 DF, 1X/DAY (IN THE MORNING)
     Dates: start: 20060701

REACTIONS (10)
  - ACUTE RESPIRATORY FAILURE [None]
  - ASTHENIA [None]
  - DYSURIA [None]
  - GAIT DISTURBANCE [None]
  - MOTOR DYSFUNCTION [None]
  - MYALGIA [None]
  - POLYMYOSITIS [None]
  - RESPIRATORY DISORDER [None]
  - RHABDOMYOLYSIS [None]
  - VERTIGO [None]
